FAERS Safety Report 21967101 (Version 1)
Quarter: 2023Q1

REPORT INFORMATION
  Report Type: Spontaneous
  Country: US (occurrence: None)
  Receive Date: 20230206
  Receipt Date: 20230206
  Transmission Date: 20230417
  Serious: Yes (Other)
  Sender: FDA-Public Use
  Company Number: None

PATIENT
  Age: 60 Year
  Sex: Male
  Weight: 92.88 kg

DRUGS (3)
  1. HALOPERIDOL [Suspect]
     Active Substance: HALOPERIDOL
     Indication: Schizophrenia
     Dosage: FREQUENCY : AT BEDTIME;?
     Route: 048
     Dates: start: 20220323
  2. MELOXICAM [Concomitant]
     Active Substance: MELOXICAM
  3. BENZTROPINE [Concomitant]
     Active Substance: BENZTROPINE
     Dates: start: 20220426

REACTIONS (8)
  - Therapy change [None]
  - Cognitive disorder [None]
  - Delusion [None]
  - Staring [None]
  - Flat affect [None]
  - Social avoidant behaviour [None]
  - Apathy [None]
  - Antipsychotic drug level below therapeutic [None]

NARRATIVE: CASE EVENT DATE: 20220510
